FAERS Safety Report 15439170 (Version 3)
Quarter: 2018Q4

REPORT INFORMATION
  Report Type: Spontaneous
  Country: US (occurrence: US)
  Receive Date: 20180928
  Receipt Date: 20181109
  Transmission Date: 20190204
  Serious: Yes (Disabling, Other)
  Sender: FDA-Public Use
  Company Number: US-AMGEN-USASP2018133875

PATIENT
  Age: 62 Year
  Sex: Female

DRUGS (5)
  1. ZOMIG [Concomitant]
     Active Substance: ZOLMITRIPTAN
     Indication: MIGRAINE
     Dosage: 5 MG, AS NECESSARY
     Dates: start: 1998
  2. LEVETIRACETAM. [Concomitant]
     Active Substance: LEVETIRACETAM
     Indication: MIGRAINE
     Dosage: 500 MG, TID
     Dates: start: 20150406
  3. MEMANTINE. [Concomitant]
     Active Substance: MEMANTINE
     Indication: MIGRAINE
     Dosage: 10 MG, BID
     Dates: start: 20120618
  4. SUMATRIPTAN. [Concomitant]
     Active Substance: SUMATRIPTAN
     Indication: MIGRAINE
     Dosage: 6 MG STAT DOSE AND AS NECESSARY AT DAWN OF TIME
  5. AIMOVIG [Suspect]
     Active Substance: ERENUMAB-AOOE
     Indication: MIGRAINE PROPHYLAXIS
     Dosage: 140 MG, QMO
     Route: 058
     Dates: start: 20180723

REACTIONS (3)
  - Fall [Unknown]
  - Fibula fracture [Not Recovered/Not Resolved]
  - Ankle fracture [Not Recovered/Not Resolved]

NARRATIVE: CASE EVENT DATE: 20180910
